FAERS Safety Report 9487424 (Version 2)
Quarter: 2013Q3

REPORT INFORMATION
  Report Type: Spontaneous
  Country: US (occurrence: US)
  Receive Date: 20130725
  Receipt Date: 20130725
  Transmission Date: 20140515
  Serious: No
  Sender: FDA-Public Use
  Company Number: US-GLAXOSMITHKLINE-A0775489A

PATIENT
  Sex: Male

DRUGS (2)
  1. AVANDIA [Suspect]
     Indication: DIABETES MELLITUS
     Dosage: 4MG TWICE PER DAY
     Route: 048
     Dates: start: 2005, end: 2008
  2. ACTOS [Concomitant]
     Dates: start: 2001, end: 2005

REACTIONS (3)
  - Arterial occlusive disease [Not Recovered/Not Resolved]
  - Cardiac disorder [Unknown]
  - Diastolic dysfunction [Unknown]
